FAERS Safety Report 7553036-6 (Version None)
Quarter: 2011Q2

REPORT INFORMATION
  Report Type: 
  Country: None (occurrence: None)
  Receive Date: 20110616
  Receipt Date: 20110608
  Transmission Date: 20111010
  Serious: Yes (Death)
  Sender: FDA-Public Use
  Company Number: US-GILEAD-2011-0040367

PATIENT
  Age: 86 Year

DRUGS (1)
  1. LETAIRIS [Suspect]
     Indication: PRODUCT USED FOR UNKNOWN INDICATION
     Route: 048
     Dates: start: 20090909, end: 20110602

REACTIONS (2)
  - MESOTHELIOMA [None]
  - EXPOSURE TO CHEMICAL POLLUTION [None]
